FAERS Safety Report 24548573 (Version 3)
Quarter: 2024Q4

REPORT INFORMATION
  Report Type: Spontaneous
  Country: GR (occurrence: GR)
  Receive Date: 20241025
  Receipt Date: 20241116
  Transmission Date: 20250115
  Serious: Yes (Death, Life-Threatening, Hospitalization, Other)
  Sender: MACLEODS
  Company Number: GR-MACLEODS PHARMA-MAC2024049979

PATIENT

DRUGS (7)
  1. LINEZOLID [Suspect]
     Active Substance: LINEZOLID
     Indication: Pulmonary tuberculosis
     Route: 065
     Dates: start: 202211
  2. PRETOMANID [Suspect]
     Active Substance: PRETOMANID
     Indication: Pulmonary tuberculosis
     Route: 048
     Dates: start: 202211
  3. CYCLOSERINE [Suspect]
     Active Substance: CYCLOSERINE
     Indication: Pulmonary tuberculosis
     Route: 065
     Dates: start: 202211
  4. CYCLOSERINE [Suspect]
     Active Substance: CYCLOSERINE
     Route: 065
     Dates: start: 202211, end: 2022
  5. AMIKACIN [Suspect]
     Active Substance: AMIKACIN
     Indication: Pulmonary tuberculosis
     Route: 065
     Dates: start: 202211
  6. BEDAQUILINE [Suspect]
     Active Substance: BEDAQUILINE
     Indication: Pulmonary tuberculosis
     Dosage: 3 TIMES PER WEEK
     Route: 065
     Dates: start: 202211
  7. BEDAQUILINE [Suspect]
     Active Substance: BEDAQUILINE
     Route: 065
     Dates: start: 202211, end: 2022

REACTIONS (3)
  - Septic shock [Fatal]
  - Pneumonia klebsiella [Fatal]
  - Myocarditis [Recovered/Resolved]
